FAERS Safety Report 7360517-7 (Version None)
Quarter: 2011Q1

REPORT INFORMATION
  Report Type: 
  Country: None (occurrence: None)
  Receive Date: 20110309
  Receipt Date: 20110222
  Transmission Date: 20110831
  Serious: Yes (Other)
  Sender: FDA-Public Use
  Company Number: 2011ST000018

PATIENT
  Age: 70 Year
  Sex: Male
  Weight: 83.9154 kg

DRUGS (3)
  1. LISINOPRIL [Concomitant]
  2. ZEGERID [Suspect]
     Indication: GASTROOESOPHAGEAL REFLUX DISEASE
     Dosage: 40 MG, QD, PO
     Route: 048
     Dates: start: 19990101
  3. FINASTERIDE [Concomitant]

REACTIONS (3)
  - DRUG INEFFECTIVE [None]
  - OESOPHAGEAL STENOSIS [None]
  - PROSTATOMEGALY [None]
